FAERS Safety Report 8459025 (Version 8)
Quarter: 2015Q3

REPORT INFORMATION
  Report Type: Spontaneous
  Country: US (occurrence: US)
  Receive Date: 20120314
  Receipt Date: 20150709
  Transmission Date: 20151125
  Serious: Yes (Hospitalization, Other)
  Sender: FDA-Public Use
  Company Number: US-BAYER-2012-023488

PATIENT
  Age: 25 Year
  Sex: Female

DRUGS (3)
  1. BETAMETHASONE. [Concomitant]
     Active Substance: BETAMETHASONE
  2. MIRENA [Suspect]
     Active Substance: LEVONORGESTREL
     Indication: CONTRACEPTION
     Dosage: 20 MCG/24HR, CONT
     Route: 015
     Dates: start: 20080709
  3. HYDROXYPROGESTERONE [Concomitant]
     Active Substance: HYDROXYPROGESTERONE

REACTIONS (17)
  - Vaginal haemorrhage [None]
  - Infection [None]
  - Device dislocation [None]
  - Amniotic cavity infection [None]
  - Haemorrhage in pregnancy [Recovered/Resolved]
  - Complication of pregnancy [None]
  - Medical device complication [None]
  - Abdominal pain upper [None]
  - Pelvic discomfort [None]
  - Abdominal pain [None]
  - Blood glucose decreased [None]
  - Drug ineffective [None]
  - Device difficult to use [None]
  - Amenorrhoea [None]
  - Premature rupture of membranes [None]
  - Premature delivery [None]
  - Pregnancy with contraceptive device [Recovered/Resolved]

NARRATIVE: CASE EVENT DATE: 200810
